FAERS Safety Report 18521968 (Version 1)
Quarter: 2020Q4

REPORT INFORMATION
  Report Type: Spontaneous
  Country: US (occurrence: US)
  Receive Date: 20201119
  Receipt Date: 20201119
  Transmission Date: 20210114
  Serious: No
  Sender: FDA-Public Use
  Company Number: None

PATIENT
  Age: 66 Year
  Sex: Female

DRUGS (1)
  1. EYLEA [Suspect]
     Active Substance: AFLIBERCEPT
     Indication: DIABETIC RETINOPATHY
     Dosage: ?          OTHER FREQUENCY:EVERY FOUR WEEKS;OTHER ROUTE:INTRAVITREAL?
     Dates: start: 20190930

REACTIONS (4)
  - Vitritis [None]
  - Photopsia [None]
  - Photosensitivity reaction [None]
  - Visual impairment [None]

NARRATIVE: CASE EVENT DATE: 20201117
